FAERS Safety Report 8610344 (Version 3)
Quarter: 2012Q4

REPORT INFORMATION
  Report Type: 
  Country: US (occurrence: US)
  Receive Date: 20120612
  Receipt Date: 20120926
  Transmission Date: 20130627
  Serious: Yes (Death)
  Sender: FDA-Public Use
  Company Number: US-PFIZER INC-2012138201

PATIENT
  Age: 48 Year
  Sex: Male

DRUGS (1)
  1. RAPAMUNE [Suspect]
     Dosage: 2 mg, 1x/day
     Route: 048
     Dates: start: 20110329, end: 20110721

REACTIONS (1)
  - Death [Fatal]
